FAERS Safety Report 16389070 (Version 1)
Quarter: 2019Q2

REPORT INFORMATION
  Report Type: Report from Study
  Country: BR (occurrence: BR)
  Receive Date: 20190604
  Receipt Date: 20190604
  Transmission Date: 20190711
  Serious: Yes (Other)
  Sender: FDA-Public Use
  Company Number: BR-BAYER-2019-103403

PATIENT
  Age: 20 Year
  Sex: Female

DRUGS (4)
  1. MITRUL [Concomitant]
     Active Substance: CYCLOBENZAPRINE
     Indication: HEADACHE
     Dosage: 10 MG, PRN
     Dates: start: 20190507
  2. BETAFERON [Suspect]
     Active Substance: INTERFERON BETA-1B
     Dosage: 0.25 MG, QOD
     Dates: start: 20190505, end: 20190507
  3. BETAFERON [Suspect]
     Active Substance: INTERFERON BETA-1B
     Dosage: 0.25 MG, OW
     Dates: start: 20190521
  4. MITRUL [Concomitant]
     Active Substance: CYCLOBENZAPRINE
     Indication: HEADACHE
     Dosage: UNK
     Dates: start: 20190505, end: 20190505

REACTIONS (10)
  - Injection site hypersensitivity [Recovering/Resolving]
  - Headache [Not Recovered/Not Resolved]
  - Injection site erythema [Recovering/Resolving]
  - Inappropriate schedule of product administration [Not Recovered/Not Resolved]
  - Neuropathy peripheral [Not Recovered/Not Resolved]
  - Pain [Not Recovered/Not Resolved]
  - Off label use [Not Recovered/Not Resolved]
  - Paraesthesia [Not Recovered/Not Resolved]
  - Injection site indentation [Recovering/Resolving]
  - Injection site pain [Recovering/Resolving]

NARRATIVE: CASE EVENT DATE: 20190505
